FAERS Safety Report 24174465 (Version 2)
Quarter: 2025Q2

REPORT INFORMATION
  Report Type: Spontaneous
  Country: CN (occurrence: CN)
  Receive Date: 20240805
  Receipt Date: 20250608
  Transmission Date: 20250716
  Serious: Yes (Hospitalization)
  Sender: COHERUS
  Company Number: CN-SHANGHAI JUNSHI BIOSCIENCES CO., LTD.-CN2024010802

PATIENT

DRUGS (4)
  1. TORIPALIMAB [Suspect]
     Active Substance: TORIPALIMAB
     Indication: Salivary gland cancer
     Dosage: 240 MG, Q3W
     Route: 041
     Dates: start: 20240426, end: 20240426
  2. DOCETAXEL [Suspect]
     Active Substance: DOCETAXEL
     Indication: Salivary gland cancer
     Route: 041
     Dates: start: 20240423, end: 20240423
  3. CISPLATIN [Suspect]
     Active Substance: CISPLATIN
     Indication: Salivary gland cancer
     Dosage: 45 MG (D1-D3), QD
     Route: 041
     Dates: start: 20240423, end: 20240426
  4. LEUPROLIDE ACETATE [Suspect]
     Active Substance: LEUPROLIDE ACETATE
     Indication: Salivary gland cancer
     Route: 058
     Dates: start: 20240423, end: 20240426

REACTIONS (2)
  - White blood cell count decreased [Recovered/Resolved]
  - Off label use [Unknown]

NARRATIVE: CASE EVENT DATE: 20240426
